FAERS Safety Report 7491085-7 (Version None)
Quarter: 2011Q2

REPORT INFORMATION
  Report Type: 
  Country: None (occurrence: None)
  Receive Date: 20110519
  Receipt Date: 20110517
  Transmission Date: 20111010
  Serious: Yes (Hospitalization, Other)
  Sender: FDA-Public Use
  Company Number: CH-ROCHE-761552

PATIENT
  Sex: Male

DRUGS (6)
  1. CANDESARTAN CILEXETIL [Concomitant]
     Dates: start: 20090801
  2. PEGASYS [Suspect]
     Indication: HEPATITIS C
     Route: 058
     Dates: start: 20091208, end: 20110201
  3. REYATAZ [Concomitant]
     Indication: HIV INFECTION
     Route: 048
     Dates: start: 20090701
  4. NORVIR [Concomitant]
     Indication: HIV INFECTION
     Dates: start: 20090701
  5. COPEGUS [Suspect]
     Indication: HEPATITIS C
     Route: 048
     Dates: start: 20091208, end: 20110201
  6. TRUVADA [Concomitant]
     Indication: HIV INFECTION
     Route: 048
     Dates: start: 20090701

REACTIONS (6)
  - RENAL FAILURE [None]
  - SYPHILIS [None]
  - SARCOIDOSIS [None]
  - DYSPNOEA [None]
  - THROMBOSIS [None]
  - ANAEMIA [None]
